FAERS Safety Report 5691506-6 (Version None)
Quarter: 2008Q2

REPORT INFORMATION
  Report Type: 
  Country: None (occurrence: None)
  Receive Date: 20080401
  Receipt Date: 20080321
  Transmission Date: 20081010
  Serious: No
  Sender: FDA-Public Use
  Company Number: APP200800212

PATIENT
  Age: 38 Year
  Sex: Female
  Weight: 113.3993 kg

DRUGS (4)
  1. HEPARIN SODIUM INJECTION [Suspect]
     Indication: THROMBOSIS
     Dosage: 5000 USP UNITS, 2 IN 1 D,SUBCUTANEOUS; 10000 USP UNITS, 2 IN 1 D, SUBCUTANEOUS
     Route: 058
     Dates: start: 20080101, end: 20080229
  2. HEPARIN SODIUM INJECTION [Suspect]
     Indication: THROMBOSIS
     Dosage: 5000 USP UNITS, 2 IN 1 D,SUBCUTANEOUS; 10000 USP UNITS, 2 IN 1 D, SUBCUTANEOUS
     Route: 058
     Dates: start: 20080201, end: 20080229
  3. VITAMIN TAB [Concomitant]
  4. CALCIUM (CALCIUM) [Concomitant]

REACTIONS (4)
  - DRUG EXPOSURE DURING PREGNANCY [None]
  - INJECTION SITE IRRITATION [None]
  - NAUSEA [None]
  - VOMITING [None]
